FAERS Safety Report 5839311-1 (Version None)
Quarter: 2008Q3

REPORT INFORMATION
  Report Type: 
  Country: None (occurrence: None)
  Receive Date: 20080808
  Receipt Date: 20080729
  Transmission Date: 20090109
  Serious: Yes (Other)
  Sender: FDA-Public Use
  Company Number: US-PFIZER INC-2008064391

PATIENT
  Sex: Female

DRUGS (5)
  1. AZULFIDINE EN-TABS [Suspect]
  2. DILANTIN [Suspect]
     Indication: GRAND MAL CONVULSION
  3. LIBRAX [Suspect]
  4. TOPAMAX [Suspect]
     Indication: CONVULSION
  5. ALL OTHER NON-THERAPEUTIC PRODUCTS [Suspect]
     Indication: COLONOSCOPY

REACTIONS (21)
  - APHASIA [None]
  - COLITIS [None]
  - CONVULSION [None]
  - CYST [None]
  - DISTURBANCE IN ATTENTION [None]
  - DRUG INEFFECTIVE [None]
  - DRUG LEVEL BELOW THERAPEUTIC [None]
  - DRUG LEVEL DECREASED [None]
  - FALL [None]
  - FORMICATION [None]
  - GRAND MAL CONVULSION [None]
  - HEADACHE [None]
  - HYPERTENSION [None]
  - KNEE OPERATION [None]
  - MEMORY IMPAIRMENT [None]
  - MENTAL DISORDER [None]
  - MENTAL IMPAIRMENT [None]
  - SHOULDER OPERATION [None]
  - STRESS [None]
  - TREMOR [None]
  - WEIGHT INCREASED [None]
